FAERS Safety Report 6678087-5 (Version None)
Quarter: 2010Q2

REPORT INFORMATION
  Report Type: 
  Country: None (occurrence: None)
  Receive Date: 20100409
  Receipt Date: 20100409
  Transmission Date: 20101027
  Serious: Yes (Other)
  Sender: FDA-Public Use
  Company Number: None

PATIENT
  Age: 42 Year
  Sex: Male

DRUGS (1)
  1. FENTANYL CITRATE [Suspect]
     Indication: PAIN MANAGEMENT
     Dosage: 1 PATCH EVERY 3 DAYS TOP
     Route: 061
     Dates: start: 20100324, end: 20100325

REACTIONS (1)
  - SOMNOLENCE [None]
